FAERS Safety Report 5117325-7 (Version None)
Quarter: 2006Q3

REPORT INFORMATION
  Report Type: 
  Country: None (occurrence: None)
  Receive Date: 20060929
  Receipt Date: 20060918
  Transmission Date: 20061208
  Serious: Yes (Other)
  Sender: FDA-Public Use
  Company Number: 2006AC01702

PATIENT
  Age: 14 Year
  Sex: Male

DRUGS (3)
  1. QUETIAPINE [Suspect]
     Indication: CONDUCT DISORDER
     Dosage: STARTED AT A DAILY DOSE OF 25 MG AND TITRATED TO 600 MG DAILY.
  2. QUETIAPINE [Suspect]
  3. QUETIAPINE [Suspect]
     Dosage: 600 MG DAILY REDUCED GRADUALLY TO 400 MG DAILY OVER 2 WEEKS.

REACTIONS (2)
  - GALACTORRHOEA [None]
  - HYPERPROLACTINAEMIA [None]
